FAERS Safety Report 22209804 (Version 1)
Quarter: 2023Q2

REPORT INFORMATION
  Report Type: Report from Study
  Country: BR (occurrence: BR)
  Receive Date: 20230414
  Receipt Date: 20230414
  Transmission Date: 20230721
  Serious: Yes (Hospitalization, Other)
  Sender: FDA-Public Use
  Company Number: BR-CELLTRION INC.-2023BR007406

PATIENT

DRUGS (5)
  1. INFLIXIMAB [Suspect]
     Active Substance: INFLIXIMAB
     Indication: Crohn^s disease
     Dosage: 6 AMPOULES EVEY 8 WEEKS
     Route: 042
     Dates: start: 20220111
  2. ZANTAC [Concomitant]
     Active Substance: RANITIDINE HYDROCHLORIDE
     Indication: Crohn^s disease
     Dosage: 2 PILLS PER DAY
     Route: 048
     Dates: start: 202106
  3. CHOLECALCIFEROL [Concomitant]
     Active Substance: CHOLECALCIFEROL
     Indication: Vitamin D deficiency
     Dosage: 1 PILL PER WEEK
     Route: 048
     Dates: start: 2022
  4. AMITRIPTYLINE [Concomitant]
     Active Substance: AMITRIPTYLINE
     Indication: Pain
     Dosage: 1 PILL PER DAY
     Route: 048
     Dates: start: 2022
  5. PREGABALIN [Concomitant]
     Active Substance: PREGABALIN
     Indication: Pain
     Dosage: 1 PILL PER DAY
     Route: 048
     Dates: start: 2022

REACTIONS (7)
  - Perineal fistula [Not Recovered/Not Resolved]
  - Lower limb fracture [Unknown]
  - Sacroiliac joint dysfunction [Unknown]
  - Pain [Unknown]
  - Somnolence [Unknown]
  - Fatigue [Unknown]
  - Intentional dose omission [Unknown]

NARRATIVE: CASE EVENT DATE: 20220111
